FAERS Safety Report 5945493-3 (Version None)
Quarter: 2008Q4

REPORT INFORMATION
  Report Type: 
  Country: None (occurrence: None)
  Receive Date: 20081107
  Receipt Date: 20081027
  Transmission Date: 20090506
  Serious: Yes (Hospitalization)
  Sender: FDA-Public Use
  Company Number: US-PFIZER INC-2008090684

PATIENT

DRUGS (1)
  1. DIFLUCAN [Suspect]
     Route: 042

REACTIONS (1)
  - GASTROINTESTINAL PERFORATION [None]
